FAERS Safety Report 8851448 (Version 1)
Quarter: 2012Q4

REPORT INFORMATION
  Report Type: 
  Country: IT (occurrence: IT)
  Receive Date: 20121022
  Receipt Date: 20121022
  Transmission Date: 20130627
  Serious: No
  Sender: FDA-Public Use
  Company Number: IT-009507513-1210ITA004460

PATIENT
  Age: 68 Year
  Sex: Female

DRUGS (3)
  1. ASENAPINE MALEATE-BIPOLAR DISORDER [Suspect]
     Indication: BIPOLAR DISORDER
     Dosage: 10 mg, UNK
     Route: 060
     Dates: start: 20120620, end: 20120704
  2. DULOXETINE HYDROCHLORIDE [Concomitant]
     Dosage: UNK
     Dates: start: 20080601
  3. SERTRALINE HYDROCHLORIDE [Concomitant]
     Dosage: UNK
     Dates: start: 20110601

REACTIONS (1)
  - Hypotension [Recovered/Resolved]
